FAERS Safety Report 11592782 (Version 1)
Quarter: 2015Q4

REPORT INFORMATION
  Report Type: Spontaneous
  Country: US (occurrence: None)
  Receive Date: 20151002
  Receipt Date: 20151002
  Transmission Date: 20160304
  Serious: No
  Sender: FDA-Public Use
  Company Number: None

PATIENT
  Age: 57 Year
  Sex: Female
  Weight: 120.2 kg

DRUGS (6)
  1. CALCIUM [Concomitant]
     Active Substance: CALCIUM
  2. HEARING AIDS [Concomitant]
  3. PROLIA [Concomitant]
     Active Substance: DENOSUMAB
  4. ESTRACE [Suspect]
     Active Substance: ESTRADIOL
     Indication: VULVOVAGINAL DRYNESS
     Dosage: 1/4 APPLICATORFUL, AT BEDTIME
     Route: 067
     Dates: start: 20150917, end: 20150930
  5. VITAMIN D [Concomitant]
     Active Substance: CHOLECALCIFEROL
  6. HYDROCHLORIDE [Concomitant]
     Active Substance: UNSPECIFIED INGREDIENT

REACTIONS (1)
  - Breast tenderness [None]
